FAERS Safety Report 5943438-3 (Version None)
Quarter: 2008Q4

REPORT INFORMATION
  Report Type: 
  Country: None (occurrence: None)
  Receive Date: 20081104
  Receipt Date: 20081012
  Transmission Date: 20090506
  Serious: Yes (Death)
  Sender: FDA-Public Use
  Company Number: CHPA2008US17959

PATIENT
  Age: 39 Year
  Sex: Female

DRUGS (3)
  1. ASPIRIN [Suspect]
     Dosage: ORAL
     Route: 048
  2. ACETAMINOPHEN [Suspect]
  3. CARISOPRODOL [Suspect]
     Dosage: ORAL
     Route: 048

REACTIONS (1)
  - COMPLETED SUICIDE [None]
